FAERS Safety Report 9604433 (Version 2)
Quarter: 2013Q4

REPORT INFORMATION
  Report Type: Spontaneous
  Country: SE (occurrence: SE)
  Receive Date: 20131008
  Receipt Date: 20131031
  Transmission Date: 20140711
  Serious: Yes (Death)
  Sender: FDA-Public Use
  Company Number: SE-ELI_LILLY_AND_COMPANY-SE201310000908

PATIENT
  Age: 64 Year
  Sex: Male

DRUGS (6)
  1. YENTREVE [Suspect]
     Indication: STRESS URINARY INCONTINENCE
     Dosage: 40 MG, QD
     Route: 065
     Dates: start: 201110
  2. TRIATEC                            /00885601/ [Concomitant]
     Dosage: UNK, UNKNOWN
  3. METFORMIN [Concomitant]
     Dosage: UNK, UNKNOWN
  4. SIMVASTATIN [Concomitant]
     Dosage: UNK, UNKNOWN
  5. JANUVIA [Concomitant]
     Dosage: UNK, UNKNOWN
  6. HUMULIN NPH [Concomitant]
     Dosage: UNK, UNKNOWN

REACTIONS (4)
  - Road traffic accident [Fatal]
  - Disturbance in attention [Unknown]
  - Drug level increased [Unknown]
  - Off label use [Unknown]
